FAERS Safety Report 6469727-4 (Version None)
Quarter: 2009Q4

REPORT INFORMATION
  Report Type: 
  Country: None (occurrence: None)
  Receive Date: 20091119
  Receipt Date: 20090724
  Transmission Date: 20100525
  Serious: Yes (Hospitalization)
  Sender: FDA-Public Use
  Company Number: WAES 0907USA04378

PATIENT
  Age: 73 Year
  Sex: Female

DRUGS (1)
  1. JANUVIA [Suspect]
     Indication: TYPE 2 DIABETES MELLITUS
     Dosage: 50 MG/DAILY/PO
     Route: 048
     Dates: start: 20090720, end: 20090721

REACTIONS (1)
  - URTICARIA [None]
